FAERS Safety Report 20511518 (Version 1)
Quarter: 2022Q1

REPORT INFORMATION
  Report Type: Spontaneous
  Country: US (occurrence: None)
  Receive Date: 20220223
  Receipt Date: 20220223
  Transmission Date: 20220423
  Serious: Yes (Life-Threatening, Hospitalization)
  Sender: FDA-Public Use
  Company Number: None

PATIENT
  Age: 46 Year
  Sex: Male
  Weight: 131 kg

DRUGS (3)
  1. DILTIAZEM [Suspect]
     Active Substance: DILTIAZEM
     Dosage: OTHER FREQUENCY : CONTINUOUS;?
     Route: 041
     Dates: start: 20220223, end: 20220223
  2. PROPRANOLOL [Concomitant]
     Active Substance: PROPRANOLOL HYDROCHLORIDE
     Dates: start: 20220223, end: 20220223
  3. METOPROLOL TARTRATE [Concomitant]
     Active Substance: METOPROLOL TARTRATE
     Dates: start: 20220223, end: 20220223

REACTIONS (6)
  - Hypotension [None]
  - Bradycardia [None]
  - Hyperhidrosis [None]
  - Dizziness [None]
  - Hyperglycaemia [None]
  - Hyperventilation [None]

NARRATIVE: CASE EVENT DATE: 20220223
